FAERS Safety Report 24044835 (Version 1)
Quarter: 2024Q3

REPORT INFORMATION
  Report Type: Spontaneous
  Country: US (occurrence: None)
  Receive Date: 20240702
  Receipt Date: 20240702
  Transmission Date: 20241016
  Serious: Yes (Hospitalization)
  Sender: Public
  Company Number: None

PATIENT
  Age: 32 Year
  Sex: Female

DRUGS (2)
  1. AMBRISENTAN [Suspect]
     Active Substance: AMBRISENTAN
     Indication: Pulmonary hypertension
     Dosage: FREQUENCY : DAILY;?
     Route: 048
     Dates: start: 20220719
  2. CODEINE [Suspect]
     Active Substance: CODEINE

REACTIONS (3)
  - Chest pain [None]
  - Dyspnoea [None]
  - Cardiac failure [None]

NARRATIVE: CASE EVENT DATE: 20230702
